FAERS Safety Report 5014662-1 (Version None)
Quarter: 2006Q2

REPORT INFORMATION
  Report Type: 
  Country: None (occurrence: None)
  Receive Date: 20060531
  Receipt Date: 20060524
  Transmission Date: 20061013
  Serious: Yes (Hospitalization)
  Sender: FDA-Public Use
  Company Number: US-MERCK-0605USA04667

PATIENT
  Age: 29 Year
  Sex: Female

DRUGS (7)
  1. CANCIDAS [Suspect]
     Indication: OESOPHAGEAL CANDIDIASIS
     Route: 042
  2. CANCIDAS [Suspect]
     Route: 042
  3. CANCIDAS [Suspect]
     Route: 042
  4. CANCIDAS [Suspect]
     Route: 042
  5. CANCIDAS [Suspect]
     Route: 042
  6. FLUCONAZOLE [Suspect]
     Indication: OESOPHAGEAL CANDIDIASIS
     Route: 065
  7. VORICONAZOLE [Suspect]
     Indication: OESOPHAGEAL CANDIDIASIS
     Route: 065

REACTIONS (3)
  - DRUG INEFFECTIVE [None]
  - HIATUS HERNIA [None]
  - OESOPHAGEAL CANDIDIASIS [None]
